FAERS Safety Report 14418686 (Version 1)
Quarter: 2018Q1

REPORT INFORMATION
  Report Type: Spontaneous
  Country: US (occurrence: US)
  Receive Date: 20180122
  Receipt Date: 20180122
  Transmission Date: 20180509
  Serious: No
  Sender: FDA-Public Use
  Company Number: US-TEVA-2018-US-843192

PATIENT
  Sex: Female

DRUGS (5)
  1. SYNRIBO [Suspect]
     Active Substance: OMACETAXINE MEPESUCCINATE
     Indication: CHRONIC MYELOID LEUKAEMIA
     Dosage: DOSAGE: 2.9 MG/0.83ML; BID X 12 DAYS
     Route: 065
     Dates: start: 20171222
  2. TYLENOL [Concomitant]
     Active Substance: ACETAMINOPHEN
  3. COLACE [Concomitant]
     Active Substance: DOCUSATE SODIUM
  4. ECOTRIN [Concomitant]
     Active Substance: ASPIRIN
  5. HUMULIN R [Concomitant]
     Active Substance: INSULIN HUMAN

REACTIONS (5)
  - Pyrexia [Unknown]
  - Diarrhoea [Unknown]
  - Headache [Unknown]
  - Vomiting [Unknown]
  - Muscular weakness [Unknown]
